FAERS Safety Report 10206447 (Version 1)
Quarter: 2014Q2

REPORT INFORMATION
  Report Type: Spontaneous
  Country: US (occurrence: None)
  Receive Date: 20140528
  Receipt Date: 20140528
  Transmission Date: 20141212
  Serious: Yes (Hospitalization)
  Sender: FDA-Public Use
  Company Number: None

PATIENT
  Age: 71 Year
  Sex: Female

DRUGS (2)
  1. LIPITOR [Suspect]
     Dates: start: 20110110, end: 20110930
  2. PROBIOTIC [Suspect]
     Dates: start: 201103, end: 20110930

REACTIONS (1)
  - Liver injury [None]
